FAERS Safety Report 12741560 (Version 1)
Quarter: 2016Q3

REPORT INFORMATION
  Report Type: Spontaneous
  Country: US (occurrence: US)
  Receive Date: 20160913
  Receipt Date: 20160913
  Transmission Date: 20161109
  Serious: Yes (Life-Threatening, Hospitalization, Disabling)
  Sender: FDA-Public Use
  Company Number: None

PATIENT
  Age: 73 Year
  Sex: Male
  Weight: 63.5 kg

DRUGS (6)
  1. MAG - MINERALS [Concomitant]
  2. METHOTREXATE. [Suspect]
     Active Substance: METHOTREXATE
     Indication: PSORIASIS
     Route: 048
     Dates: start: 20111123, end: 20140715
  3. CALCIUM [Concomitant]
     Active Substance: CALCIUM
  4. OTEZLA [Concomitant]
     Active Substance: APREMILAST
  5. OMEGA 3 [Concomitant]
     Active Substance: OMEGA-3 FATTY ACIDS
  6. VITAMIN B [Concomitant]
     Active Substance: VITAMIN B

REACTIONS (7)
  - Impaired driving ability [None]
  - Activities of daily living impaired [None]
  - Mental disorder [None]
  - Abasia [None]
  - Dysstasia [None]
  - Ammonia increased [None]
  - Pain in extremity [None]

NARRATIVE: CASE EVENT DATE: 2013
